FAERS Safety Report 17699954 (Version 1)
Quarter: 2020Q2

REPORT INFORMATION
  Report Type: Spontaneous
  Country: US (occurrence: US)
  Receive Date: 20200423
  Receipt Date: 20200423
  Transmission Date: 20200714
  Serious: No
  Sender: FDA-Public Use
  Company Number: US-ASTELLAS-2019US019424

PATIENT
  Age: 76 Year
  Sex: Male

DRUGS (4)
  1. LEXISCAN [Suspect]
     Active Substance: REGADENOSON
     Indication: CARDIAC DISORDER
     Dosage: UNK, UNKNOWN FREQ.
     Route: 065
     Dates: start: 20190402
  2. LEXISCAN [Suspect]
     Active Substance: REGADENOSON
     Indication: CARDIAC DISORDER
     Dosage: UNK, UNKNOWN FREQ.
     Route: 065
     Dates: start: 20190402
  3. LEXISCAN [Suspect]
     Active Substance: REGADENOSON
     Indication: CARDIAC DISORDER
     Dosage: UNK, UNKNOWN FREQ.
     Route: 065
     Dates: start: 20190402
  4. LEXISCAN [Suspect]
     Active Substance: REGADENOSON
     Indication: CARDIAC DISORDER
     Dosage: UNK, UNKNOWN FREQ.
     Route: 065
     Dates: start: 20190402

REACTIONS (1)
  - Genital paraesthesia [Recovered/Resolved]

NARRATIVE: CASE EVENT DATE: 20190402
